FAERS Safety Report 10435813 (Version 1)
Quarter: 2014Q3

REPORT INFORMATION
  Report Type: Spontaneous
  Country: US (occurrence: US)
  Receive Date: 20140908
  Receipt Date: 20140908
  Transmission Date: 20150326
  Serious: No
  Sender: FDA-Public Use
  Company Number: US-ELI_LILLY_AND_COMPANY-US201408008408

PATIENT
  Age: 55 Year

DRUGS (3)
  1. AXIRON [Suspect]
     Active Substance: TESTOSTERONE
     Indication: BLOOD TESTOSTERONE DECREASED
     Dosage: 30 MG, QOD
     Route: 061
     Dates: start: 201402
  2. CIALIS [Concomitant]
     Active Substance: TADALAFIL
     Dosage: UNK, UNKNOWN
     Route: 065
  3. AXIRON [Suspect]
     Active Substance: TESTOSTERONE
     Dosage: 60 MG, QOD
     Route: 061
     Dates: end: 201408

REACTIONS (2)
  - Blood testosterone decreased [Unknown]
  - Drug ineffective [Not Recovered/Not Resolved]

NARRATIVE: CASE EVENT DATE: 2014
